FAERS Safety Report 10164460 (Version 1)
Quarter: 2014Q2

REPORT INFORMATION
  Report Type: Spontaneous
  Country: US (occurrence: US)
  Receive Date: 20140510
  Receipt Date: 20140510
  Transmission Date: 20141212
  Serious: No
  Sender: FDA-Public Use
  Company Number: US-BRISTOL-MYERS SQUIBB COMPANY-20188629

PATIENT
  Age: 70 Year
  Sex: Female
  Weight: 102.04 kg

DRUGS (3)
  1. BYETTA [Suspect]
     Indication: TYPE 2 DIABETES MELLITUS
  2. METFORMIN [Concomitant]
  3. LANTUS [Concomitant]
     Dosage: 1DF:40UTS

REACTIONS (1)
  - Memory impairment [Unknown]
